FAERS Safety Report 5484467-6 (Version None)
Quarter: 2007Q4

REPORT INFORMATION
  Report Type: 
  Country: None (occurrence: None)
  Receive Date: 20071009
  Receipt Date: 20070928
  Transmission Date: 20080405
  Serious: Yes (Other)
  Sender: FDA-Public Use
  Company Number: 2007332048

PATIENT
  Age: 32 Year
  Sex: Female

DRUGS (1)
  1. BENADRYL [Suspect]
     Indication: EUPHORIC MOOD

REACTIONS (4)
  - DRUG ABUSER [None]
  - FEELING COLD [None]
  - HAEMOPTYSIS [None]
  - HOT FLUSH [None]
